FAERS Safety Report 4715584-3 (Version None)
Quarter: 2005Q3

REPORT INFORMATION
  Report Type: 
  Country: None (occurrence: None)
  Receive Date: 20050713
  Receipt Date: 20050311
  Transmission Date: 20060218
  Serious: Yes (Life-Threatening)
  Sender: FDA-Public Use
  Company Number: 2005FR-00076

PATIENT
  Age: 44 Year
  Sex: Male

DRUGS (1)
  1. METFORMIN [Suspect]
     Indication: DIABETES MELLITUS
     Dosage: 500MG, ORAL
     Route: 048
     Dates: end: 20050227

REACTIONS (3)
  - ABDOMINAL PAIN [None]
  - LACTIC ACIDOSIS [None]
  - VOMITING [None]
